FAERS Safety Report 14067088 (Version 1)
Quarter: 2017Q4

REPORT INFORMATION
  Report Type: Spontaneous
  Country: US (occurrence: US)
  Receive Date: 20171009
  Receipt Date: 20171009
  Transmission Date: 20180321
  Serious: Yes (Disabling)
  Sender: FDA-Public Use
  Company Number: US-ELI_LILLY_AND_COMPANY-US201710000240

PATIENT
  Sex: Male
  Weight: 136.5 kg

DRUGS (7)
  1. ASPIRIN                            /00002701/ [Concomitant]
     Active Substance: ASPIRIN
     Indication: THROMBOSIS
     Dosage: UNK UNK, UNKNOWN
     Route: 065
     Dates: start: 2012
  2. CLOPIDOGREL [Concomitant]
     Active Substance: CLOPIDOGREL BISULFATE
     Indication: CARDIAC DISORDER
     Dosage: UNK UNK, UNKNOWN
     Route: 065
     Dates: start: 2012
  3. ATORVASTATIN [Concomitant]
     Active Substance: ATORVASTATIN
     Indication: BLOOD PRESSURE MEASUREMENT
  4. ATORVASTATIN [Concomitant]
     Active Substance: ATORVASTATIN
     Indication: CARDIAC DISORDER
     Dosage: UNK, UNKNOWN
     Route: 065
     Dates: start: 2013
  5. NORTRIPTYLINE [Concomitant]
     Active Substance: NORTRIPTYLINE
     Indication: CARDIAC DISORDER
     Dosage: UNK UNK, UNKNOWN
     Route: 065
     Dates: start: 2012
  6. AXIRON [Suspect]
     Active Substance: TESTOSTERONE
     Indication: PRODUCT USED FOR UNKNOWN INDICATION
     Dosage: UNK, UNKNOWN
     Route: 065
     Dates: start: 2012, end: 2013
  7. BUPROPION                          /00700502/ [Concomitant]
     Active Substance: BUPROPION HYDROCHLORIDE
     Indication: CARDIAC DISORDER
     Dosage: UNK UNK, UNKNOWN
     Route: 065
     Dates: start: 2012

REACTIONS (2)
  - Thrombosis [Unknown]
  - Aortic aneurysm [Unknown]
